FAERS Safety Report 8059471-4 (Version None)
Quarter: 2012Q1

REPORT INFORMATION
  Report Type: 
  Country: None (occurrence: None)
  Receive Date: 20120120
  Receipt Date: 20120110
  Transmission Date: 20120608
  Serious: Yes (Hospitalization)
  Sender: FDA-Public Use
  Company Number: US-EISAI INC-E3810-05234-SPO-US

PATIENT
  Sex: Male
  Weight: 93 kg

DRUGS (4)
  1. ACIPHEX [Suspect]
     Indication: BARRETT'S OESOPHAGUS
     Dosage: UNKNOWN
     Route: 048
  2. ADVAIR DISKUS 100/50 [Concomitant]
     Indication: ASTHMA
  3. CELEBREX [Suspect]
     Indication: INFLAMMATION
     Dosage: UNKNOWN
  4. REMICADE [Suspect]
     Indication: RHEUMATOID ARTHRITIS
     Dosage: UNKNOWN

REACTIONS (14)
  - PNEUMONIA [None]
  - HYPERTENSION [None]
  - LOCALISED INFECTION [None]
  - CONDITION AGGRAVATED [None]
  - NERVE INJURY [None]
  - BURNING SENSATION [None]
  - OEDEMA PERIPHERAL [None]
  - BRONCHITIS [None]
  - CHEST PAIN [None]
  - HYPERKERATOSIS [None]
  - PAIN [None]
  - ABDOMINAL PAIN UPPER [None]
  - INFECTED SKIN ULCER [None]
  - PAIN IN EXTREMITY [None]
